FAERS Safety Report 7378469-2 (Version None)
Quarter: 2011Q1

REPORT INFORMATION
  Report Type: 
  Country: None (occurrence: None)
  Receive Date: 20110328
  Receipt Date: 20110315
  Transmission Date: 20110831
  Serious: Yes (Death, Disabling, Other)
  Sender: FDA-Public Use
  Company Number: CA-ELI_LILLY_AND_COMPANY-CA201102003858

PATIENT
  Age: 68 Year
  Sex: Female

DRUGS (9)
  1. RATIO-OMEPRAZOLE [Concomitant]
     Dosage: UNK, UNKNOWN
     Route: 065
  2. ATACAND HCT [Concomitant]
     Dosage: UNK, UNKNOWN
     Route: 065
  3. FORTEO [Suspect]
     Indication: OSTEOPOROSIS
     Dosage: 20 UG, DAILY (1/D)
     Route: 058
     Dates: start: 20101115, end: 20110210
  4. ARTHROTEC [Concomitant]
     Dosage: UNK, UNKNOWN
     Route: 065
  5. APO-METHOTREXATE [Concomitant]
     Dosage: UNK, UNKNOWN
     Route: 065
  6. TIAZAC [Concomitant]
     Dosage: UNK, UNKNOWN
     Route: 065
  7. NOVO-LEFLUNOMIDE [Concomitant]
     Dosage: UNK, UNKNOWN
     Route: 065
  8. APO-FOLIC [Concomitant]
     Dosage: UNK, UNKNOWN
     Route: 065
  9. ASPIRIN [Concomitant]
     Dosage: UNK, UNKNOWN
     Route: 065

REACTIONS (6)
  - RASH [None]
  - RHEUMATOID ARTHRITIS [None]
  - GAIT DISTURBANCE [None]
  - MYOCARDIAL INFARCTION [None]
  - LOWER LIMB FRACTURE [None]
  - FACE OEDEMA [None]
